FAERS Safety Report 15500552 (Version 10)
Quarter: 2019Q3

REPORT INFORMATION
  Report Type: Spontaneous
  Country: US (occurrence: US)
  Receive Date: 20181015
  Receipt Date: 20190725
  Transmission Date: 20191004
  Serious: Yes (Hospitalization, Other)
  Sender: FDA-Public Use
  Company Number: US-PFIZER INC-2018418659

PATIENT
  Age: 72 Year
  Sex: Female

DRUGS (251)
  1. DILANTIN [Suspect]
     Active Substance: PHENYTOIN
     Indication: SEIZURE
     Dosage: 100 MG, 3X/DAY
     Route: 048
  2. DILANTIN [Suspect]
     Active Substance: PHENYTOIN
     Dosage: 100 MG, 4X/DAY
     Route: 048
  3. DILANTIN [Suspect]
     Active Substance: PHENYTOIN
     Dosage: 100 MG, 3X/DAY (ONE CAPSULE)
     Dates: start: 20071220
  4. DILANTIN [Suspect]
     Active Substance: PHENYTOIN
     Dosage: 100 MG, 3X/DAY (ONE CAPSULE)
     Dates: start: 20090609
  5. DILANTIN [Suspect]
     Active Substance: PHENYTOIN
     Dosage: 100 MG, 3X/DAY (ONE CAPSULE)
     Dates: start: 20130117
  6. DILANTIN [Suspect]
     Active Substance: PHENYTOIN
     Dosage: 100 MG, 3X/DAY (ONE CAPSULE)
     Dates: start: 20170501
  7. NAPROXEN SODIUM. [Concomitant]
     Active Substance: NAPROXEN SODIUM
     Indication: PAIN
     Dosage: 550 MG, 2X/DAY
     Route: 048
  8. NAPROXEN SODIUM. [Concomitant]
     Active Substance: NAPROXEN SODIUM
     Dosage: 550 MG, UNK
     Dates: start: 20150717
  9. NAPROXEN SODIUM. [Concomitant]
     Active Substance: NAPROXEN SODIUM
     Dosage: 550 MG, UNK
     Dates: start: 20170501
  10. ASPIRIN. [Concomitant]
     Active Substance: ASPIRIN
     Dosage: 81 MG, UNK
     Dates: start: 20100420
  11. ASPIRIN. [Concomitant]
     Active Substance: ASPIRIN
     Dosage: 81 MG, UNK
     Dates: start: 20171220
  12. ASPIRIN. [Concomitant]
     Active Substance: ASPIRIN
     Dosage: 81 MG, UNK
     Dates: start: 20180219
  13. FOSAMAX [Concomitant]
     Active Substance: ALENDRONATE SODIUM
     Dosage: 70 MG, UNK
     Dates: start: 20170501
  14. FOSAMAX [Concomitant]
     Active Substance: ALENDRONATE SODIUM
     Dosage: 70 MG, UNK
     Dates: start: 20170703
  15. FOSAMAX [Concomitant]
     Active Substance: ALENDRONATE SODIUM
     Dosage: 70 MG, UNK
     Dates: start: 20180521
  16. TRENTAL [Concomitant]
     Active Substance: PENTOXIFYLLINE
     Dosage: 400 MG, UNK
     Dates: start: 20140610
  17. TRENTAL [Concomitant]
     Active Substance: PENTOXIFYLLINE
     Dosage: 400 MG, UNK
     Dates: start: 20171128
  18. PHENOBARBITAL. [Concomitant]
     Active Substance: PHENOBARBITAL
     Indication: EPILEPSY
     Dosage: 16.2 MG, 3X/DAY
     Route: 048
  19. PHENOBARBITAL. [Concomitant]
     Active Substance: PHENOBARBITAL
     Dosage: 32.4 MG, 2X/DAY
     Dates: start: 20080612
  20. PHENOBARBITAL. [Concomitant]
     Active Substance: PHENOBARBITAL
     Dosage: 32.4 MG, 2X/DAY
     Dates: start: 20090414
  21. PHENOBARBITAL. [Concomitant]
     Active Substance: PHENOBARBITAL
     Dosage: 32.4 MG, 2X/DAY
     Dates: start: 20110207
  22. VITAMIN D3 [Concomitant]
     Active Substance: CHOLECALCIFEROL
     Dosage: UNK
     Dates: start: 2018
  23. STROVITE ONE [Concomitant]
     Active Substance: MINERALS\VITAMINS
     Dosage: UNK
     Dates: start: 20180321
  24. STROVITE ONE [Concomitant]
     Active Substance: MINERALS\VITAMINS
     Dosage: UNK
     Dates: start: 2017
  25. CALTRATE 600+D PLUS MINERALS [Concomitant]
     Dosage: UNK
     Dates: start: 20130117
  26. CALTRATE 600+D PLUS MINERALS [Concomitant]
     Dosage: UNK
     Dates: start: 20170501
  27. CALTRATE 600+D PLUS MINERALS [Concomitant]
     Dosage: UNK
     Dates: start: 20171107
  28. CALTRATE 600+D PLUS MINERALS [Concomitant]
     Dosage: UNK
     Dates: start: 2017
  29. KEPPRA [Concomitant]
     Active Substance: LEVETIRACETAM
     Dosage: 250 MG, 2X/DAY
     Route: 048
  30. DILANTIN [Suspect]
     Active Substance: PHENYTOIN
     Dosage: 100 MG, 3X/DAY (ONE CAPSULE)
     Dates: start: 20080612
  31. DILANTIN [Suspect]
     Active Substance: PHENYTOIN
     Dosage: 100 MG, 3X/DAY (ONE CAPSULE)
     Dates: start: 20090828
  32. DILANTIN [Suspect]
     Active Substance: PHENYTOIN
     Dosage: 100 MG, 3X/DAY (ONE CAPSULE)
     Dates: start: 20100825
  33. DILANTIN [Suspect]
     Active Substance: PHENYTOIN
     Dosage: 100 MG, 3X/DAY (ONE CAPSULE)
     Dates: start: 20130613
  34. DILANTIN [Suspect]
     Active Substance: PHENYTOIN
     Dosage: 100 MG, 3X/DAY (ONE CAPSULE)
     Dates: start: 20140610
  35. DILANTIN [Suspect]
     Active Substance: PHENYTOIN
     Dosage: 100 MG, 3X/DAY (ONE CAPSULE)
     Dates: start: 20150717
  36. DILANTIN [Suspect]
     Active Substance: PHENYTOIN
     Dosage: 100 MG, 3X/DAY (ONE CAPSULE)
     Dates: start: 20161122
  37. DILANTIN [Suspect]
     Active Substance: PHENYTOIN
     Dosage: 100 MG, 3X/DAY (ONE CAPSULE)
     Dates: start: 20170302
  38. DILANTIN [Suspect]
     Active Substance: PHENYTOIN
     Dosage: 50 MG, 1X/DAY (CHEWABLE 1 TABLET)
     Route: 048
     Dates: start: 20171121
  39. DILANTIN [Suspect]
     Active Substance: PHENYTOIN
     Dosage: 50 MG, 1X/DAY (CHEWABLE 1 TABLET)
     Route: 048
     Dates: start: 20171211
  40. DILANTIN [Suspect]
     Active Substance: PHENYTOIN
     Dosage: 50 MG, 1X/DAY (CHEWABLE 1 TABLET)
     Route: 048
     Dates: start: 20180121
  41. DILANTIN [Suspect]
     Active Substance: PHENYTOIN
     Indication: EPILEPSY
     Dosage: 100 MG, 1-4X/DAY (ONE CAPSULE)
     Dates: start: 20150717
  42. NAPROXEN SODIUM. [Concomitant]
     Active Substance: NAPROXEN SODIUM
     Dosage: 550 MG, UNK
     Dates: start: 20121215
  43. NAPROXEN SODIUM. [Concomitant]
     Active Substance: NAPROXEN SODIUM
     Dosage: 550 MG, UNK
     Dates: start: 20130107
  44. ZANTAC [Concomitant]
     Active Substance: RANITIDINE HYDROCHLORIDE
     Indication: ULCER
     Dosage: 300 MG, 1X/DAY
     Route: 048
  45. ASPIRIN. [Concomitant]
     Active Substance: ASPIRIN
     Dosage: 81 MG, UNK
     Dates: start: 20170302
  46. ASPIRIN. [Concomitant]
     Active Substance: ASPIRIN
     Dosage: 81 MG, UNK
     Dates: start: 20180207
  47. ASPIRIN. [Concomitant]
     Active Substance: ASPIRIN
     Dosage: 81 MG, UNK
     Dates: start: 20180521
  48. FOSAMAX [Concomitant]
     Active Substance: ALENDRONATE SODIUM
     Indication: OSTEOPOROSIS
     Dosage: 70 MG, WEEKLY
     Route: 048
  49. FOSAMAX [Concomitant]
     Active Substance: ALENDRONATE SODIUM
     Dosage: 70 MG, UNK
     Dates: start: 20110117
  50. FOSAMAX [Concomitant]
     Active Substance: ALENDRONATE SODIUM
     Dosage: 70 MG, UNK
     Dates: start: 20170302
  51. TRENTAL [Concomitant]
     Active Substance: PENTOXIFYLLINE
     Dosage: 400 MG, UNK
     Dates: start: 20170118
  52. TRENTAL [Concomitant]
     Active Substance: PENTOXIFYLLINE
     Dosage: 400 MG, UNK
     Dates: start: 20180521
  53. PHENOBARBITAL. [Concomitant]
     Active Substance: PHENOBARBITAL
     Dosage: 32.4 MG, 2X/DAY
     Dates: start: 20131112
  54. PHENOBARBITAL. [Concomitant]
     Active Substance: PHENOBARBITAL
     Dosage: 32.4 MG, 2X/DAY
     Dates: start: 20161018
  55. PHENOBARBITAL. [Concomitant]
     Active Substance: PHENOBARBITAL
     Dosage: 32.4 MG, 2X/DAY
     Dates: start: 20170501
  56. PRILOSEC [Concomitant]
     Active Substance: OMEPRAZOLE MAGNESIUM
     Dosage: 20 MG, UNK
     Dates: start: 20170302
  57. PRILOSEC [Concomitant]
     Active Substance: OMEPRAZOLE MAGNESIUM
     Dosage: 20 MG, UNK
     Dates: start: 20170501
  58. VITAMIN D3 [Concomitant]
     Active Substance: CHOLECALCIFEROL
     Indication: NUTRITIONAL SUPPLEMENTATION
     Dosage: 50000 IU, WEEKLY
     Route: 048
  59. LEVETIRACETAM. [Concomitant]
     Active Substance: LEVETIRACETAM
     Dosage: 250 MG, UNK
     Dates: start: 20180121, end: 20180409
  60. MULTIPLE VITAMINS WITH MINERALS [Concomitant]
     Active Substance: MINERALS\VITAMINS
     Dosage: UNK
     Route: 048
     Dates: start: 20180209, end: 20180409
  61. PENTOXIFYLLINE. [Concomitant]
     Active Substance: PENTOXIFYLLINE
     Dosage: 400 MG, 3X/DAY
     Route: 048
  62. ALENDRONATE [Concomitant]
     Active Substance: ALENDRONATE SODIUM
     Indication: OSTEOPOROSIS
     Dosage: 70 MG, WEEKLY
     Route: 048
     Dates: end: 20180406
  63. ALENDRONATE [Concomitant]
     Active Substance: ALENDRONATE SODIUM
     Dosage: 70 MG, UNK
     Dates: start: 20171121
  64. ALENDRONATE [Concomitant]
     Active Substance: ALENDRONATE SODIUM
     Dosage: 70 MG, UNK
     Dates: start: 20171211
  65. ALENDRONATE [Concomitant]
     Active Substance: ALENDRONATE SODIUM
     Dosage: 70 MG, UNK
     Dates: start: 20171220
  66. BACLOFEN. [Concomitant]
     Active Substance: BACLOFEN
     Indication: MUSCLE SPASMS
     Dosage: 20 MG, UNK
     Dates: start: 20170118
  67. CALTRATE 600+D PLUS MINERALS [Concomitant]
     Dosage: UNK
     Dates: start: 20171121
  68. CALTRATE 600+D PLUS MINERALS [Concomitant]
     Dosage: UNK
     Dates: start: 20171211
  69. KEPPRA [Concomitant]
     Active Substance: LEVETIRACETAM
     Dosage: 250 MG, 2X/DAY (ONE TABLET)
     Dates: start: 20180210
  70. KEPPRA [Concomitant]
     Active Substance: LEVETIRACETAM
     Dosage: 250 MG, 2X/DAY (ONE TABLET)
     Dates: start: 20180227
  71. DILANTIN [Suspect]
     Active Substance: PHENYTOIN
     Dosage: 100 MG, 1X/DAY
     Route: 048
  72. DILANTIN [Suspect]
     Active Substance: PHENYTOIN
     Dosage: 100 MG, 3X/DAY (ONE CAPSULE)
     Dates: start: 20081029
  73. DILANTIN [Suspect]
     Active Substance: PHENYTOIN
     Dosage: 100 MG, 3X/DAY (ONE CAPSULE)
     Dates: start: 20091002
  74. DILANTIN [Suspect]
     Active Substance: PHENYTOIN
     Dosage: 100 MG, 3X/DAY (ONE CAPSULE)
     Dates: start: 20101120
  75. DILANTIN [Suspect]
     Active Substance: PHENYTOIN
     Dosage: 100 MG, 3X/DAY (ONE CAPSULE)
     Dates: start: 20170118
  76. DILANTIN [Suspect]
     Active Substance: PHENYTOIN
     Dosage: 50 MG, 1X/DAY (CHEWABLE 1 TABLET)
     Route: 048
     Dates: start: 20180227, end: 20180321
  77. NAPROXEN SODIUM. [Concomitant]
     Active Substance: NAPROXEN SODIUM
     Dosage: 550 MG, UNK
     Dates: start: 20091002
  78. NAPROXEN SODIUM. [Concomitant]
     Active Substance: NAPROXEN SODIUM
     Dosage: 550 MG, UNK
     Dates: start: 20171107
  79. NAPROXEN SODIUM. [Concomitant]
     Active Substance: NAPROXEN SODIUM
     Dosage: 550 MG, UNK
     Dates: start: 20171121
  80. ZANTAC [Concomitant]
     Active Substance: RANITIDINE HYDROCHLORIDE
     Dosage: 300 MG, UNK
     Dates: start: 20140610
  81. ASPIRIN. [Concomitant]
     Active Substance: ASPIRIN
     Indication: PAIN
     Dosage: 81 MG, 1X/DAY
     Route: 048
  82. ASPIRIN. [Concomitant]
     Active Substance: ASPIRIN
     Dosage: 81 MG, UNK
     Dates: start: 20121018
  83. ASPIRIN. [Concomitant]
     Active Substance: ASPIRIN
     Dosage: 81 MG, UNK
     Dates: start: 20121215
  84. ASPIRIN. [Concomitant]
     Active Substance: ASPIRIN
     Dosage: 81 MG, UNK
     Dates: start: 20150717
  85. ASPIRIN. [Concomitant]
     Active Substance: ASPIRIN
     Dosage: 81 MG, UNK
     Dates: start: 20171121
  86. FOSAMAX [Concomitant]
     Active Substance: ALENDRONATE SODIUM
     Dosage: 70 MG, UNK
     Dates: start: 20150717
  87. TRENTAL [Concomitant]
     Active Substance: PENTOXIFYLLINE
     Dosage: 400 MG, UNK
     Dates: start: 20071220
  88. TRENTAL [Concomitant]
     Active Substance: PENTOXIFYLLINE
     Dosage: 400 MG, UNK
     Dates: start: 20171208
  89. TRENTAL [Concomitant]
     Active Substance: PENTOXIFYLLINE
     Dosage: 400 MG, UNK
     Dates: start: 20180219
  90. PHENOBARBITAL. [Concomitant]
     Active Substance: PHENOBARBITAL
     Dosage: 32.4 MG, 2X/DAY
     Dates: start: 20100104
  91. PHENOBARBITAL. [Concomitant]
     Active Substance: PHENOBARBITAL
     Dosage: 32.4 MG, 2X/DAY
     Dates: start: 20101120
  92. PHENOBARBITAL. [Concomitant]
     Active Substance: PHENOBARBITAL
     Dosage: 32.4 MG, 2X/DAY
     Dates: start: 20110117
  93. PHENOBARBITAL. [Concomitant]
     Active Substance: PHENOBARBITAL
     Dosage: 32.4 MG, 2X/DAY
     Dates: start: 20121018
  94. PHENOBARBITAL. [Concomitant]
     Active Substance: PHENOBARBITAL
     Dosage: 32.4 MG, 2X/DAY
     Dates: start: 20130613
  95. PHENOBARBITAL. [Concomitant]
     Active Substance: PHENOBARBITAL
     Dosage: 32.4 MG, 2X/DAY
     Dates: start: 20150717
  96. PHENOBARBITAL. [Concomitant]
     Active Substance: PHENOBARBITAL
     Dosage: 16.2 MG, (ONE TABLET)
     Route: 048
     Dates: start: 20171220
  97. PHENOBARBITAL. [Concomitant]
     Active Substance: PHENOBARBITAL
     Dosage: 16.2 MG, (ONE TABLET)
     Route: 048
     Dates: start: 20180321
  98. ALENDRONATE [Concomitant]
     Active Substance: ALENDRONATE SODIUM
     Dosage: 70 MG, UNK
     Dates: start: 20171208
  99. CALTRATE 600+D PLUS MINERALS [Concomitant]
     Dosage: UNK
     Dates: start: 20140610
  100. CALTRATE 600+D PLUS MINERALS [Concomitant]
     Dosage: UNK
     Dates: start: 20150717
  101. FERROUS SULFATE. [Concomitant]
     Active Substance: FERROUS SULFATE
     Dosage: UNK
     Dates: start: 20100916
  102. RELAFEN [Concomitant]
     Active Substance: NABUMETONE
     Dosage: 750 MG, UNK
     Dates: start: 20131112
  103. DILANTIN [Suspect]
     Active Substance: PHENYTOIN
     Dosage: 100 MG, 3X/DAY (ONE CAPSULE)
     Dates: start: 20090918
  104. DILANTIN [Suspect]
     Active Substance: PHENYTOIN
     Dosage: 100 MG, 3X/DAY (ONE CAPSULE)
     Dates: start: 20100104
  105. DILANTIN [Suspect]
     Active Substance: PHENYTOIN
     Dosage: 100 MG, 3X/DAY (ONE CAPSULE)
     Dates: start: 20100514
  106. DILANTIN [Suspect]
     Active Substance: PHENYTOIN
     Dosage: 100 MG, 3X/DAY (ONE CAPSULE)
     Dates: start: 20110207
  107. DILANTIN [Suspect]
     Active Substance: PHENYTOIN
     Dosage: 100 MG, 3X/DAY (ONE CAPSULE)
     Dates: start: 20121215
  108. DILANTIN [Suspect]
     Active Substance: PHENYTOIN
     Dosage: 50 MG, 1X/DAY (CHEWABLE 1 TABLET)
     Route: 048
     Dates: start: 20171208
  109. NAPROXEN SODIUM. [Concomitant]
     Active Substance: NAPROXEN SODIUM
     Dosage: 550 MG, UNK
     Dates: start: 20140610
  110. NAPROXEN SODIUM. [Concomitant]
     Active Substance: NAPROXEN SODIUM
     Dosage: 550 MG, UNK
     Dates: start: 20171220
  111. ZANTAC [Concomitant]
     Active Substance: RANITIDINE HYDROCHLORIDE
     Dosage: 300 MG, UNK
     Dates: start: 20150717
  112. ZANTAC [Concomitant]
     Active Substance: RANITIDINE HYDROCHLORIDE
     Dosage: 300 MG, UNK
     Dates: start: 20170118
  113. ZANTAC [Concomitant]
     Active Substance: RANITIDINE HYDROCHLORIDE
     Dosage: 300 MG, UNK
     Dates: start: 20170302
  114. ASPIRIN. [Concomitant]
     Active Substance: ASPIRIN
     Dosage: 81 MG, UNK
     Dates: start: 20170501
  115. ASPIRIN. [Concomitant]
     Active Substance: ASPIRIN
     Dosage: 81 MG, UNK
     Dates: start: 20171107
  116. ASPIRIN. [Concomitant]
     Active Substance: ASPIRIN
     Dosage: 81 MG, UNK
     Dates: start: 20171211
  117. FOSAMAX [Concomitant]
     Active Substance: ALENDRONATE SODIUM
     Dosage: 70 MG, UNK
     Dates: start: 20180227
  118. TRENTAL [Concomitant]
     Active Substance: PENTOXIFYLLINE
     Dosage: 400 MG, UNK
     Dates: start: 20110117
  119. TRENTAL [Concomitant]
     Active Substance: PENTOXIFYLLINE
     Dosage: 400 MG, UNK
     Dates: start: 20171107
  120. TRENTAL [Concomitant]
     Active Substance: PENTOXIFYLLINE
     Dosage: 400 MG, UNK
     Dates: start: 20171121
  121. TRENTAL [Concomitant]
     Active Substance: PENTOXIFYLLINE
     Dosage: 400 MG, UNK
     Dates: start: 20171211
  122. PHENOBARBITAL. [Concomitant]
     Active Substance: PHENOBARBITAL
     Dosage: 32.4 MG, 2X/DAY
     Dates: start: 20090609
  123. PHENOBARBITAL. [Concomitant]
     Active Substance: PHENOBARBITAL
     Dosage: 32.4 MG, 2X/DAY
     Dates: start: 20090918
  124. PHENOBARBITAL. [Concomitant]
     Active Substance: PHENOBARBITAL
     Dosage: 32.4 MG, 2X/DAY
     Dates: start: 20121215
  125. PHENOBARBITAL. [Concomitant]
     Active Substance: PHENOBARBITAL
     Dosage: 32.4 MG, 2X/DAY
     Dates: start: 20130117
  126. PHENOBARBITAL. [Concomitant]
     Active Substance: PHENOBARBITAL
     Dosage: 32.4 MG, 2X/DAY
     Dates: start: 20171107
  127. PRILOSEC [Concomitant]
     Active Substance: OMEPRAZOLE MAGNESIUM
     Dosage: 20 MG, UNK
     Dates: start: 20170118
  128. PRILOSEC [Concomitant]
     Active Substance: OMEPRAZOLE MAGNESIUM
     Dosage: 20 MG, UNK
     Dates: start: 20170703
  129. CYANOCOBALAMIN. [Concomitant]
     Active Substance: CYANOCOBALAMIN
     Dosage: 1000 UG, 1X/DAY
     Route: 048
  130. PHENYTOIN. [Concomitant]
     Active Substance: PHENYTOIN
     Dosage: 50 MG, 2X/DAY
     Route: 048
  131. STROVITE ONE [Concomitant]
     Active Substance: MINERALS\VITAMINS
     Dosage: UNK
     Dates: start: 20180207
  132. STROVITE ONE [Concomitant]
     Active Substance: MINERALS\VITAMINS
     Dosage: UNK
     Dates: start: 20180227
  133. ALENDRONATE [Concomitant]
     Active Substance: ALENDRONATE SODIUM
     Dosage: 70 MG, UNK
     Dates: start: 20171128
  134. VITAMIN D2 [Concomitant]
     Active Substance: ERGOCALCIFEROL
     Dosage: 1 DF, WEEKLY (50,000 IU)
     Route: 048
     Dates: end: 20180615
  135. BACLOFEN. [Concomitant]
     Active Substance: BACLOFEN
     Dosage: 20 MG, UNK
     Dates: start: 20170302
  136. CALTRATE 600+D PLUS MINERALS [Concomitant]
     Indication: NUTRITIONAL SUPPLEMENTATION
     Dosage: UNK
     Dates: start: 20071220
  137. CALTRATE 600+D PLUS MINERALS [Concomitant]
     Dosage: UNK
     Dates: start: 20121018
  138. CALTRATE 600+D PLUS MINERALS [Concomitant]
     Dosage: UNK
     Dates: start: 20171128
  139. VITAMIN B12 [Concomitant]
     Active Substance: CYANOCOBALAMIN
     Indication: VITAMIN SUPPLEMENTATION
     Dosage: UNK
     Dates: start: 20131205
  140. VITAMIN B12 [Concomitant]
     Active Substance: CYANOCOBALAMIN
     Indication: NUTRITIONAL SUPPLEMENTATION
     Dosage: 1000 UG, UNK
     Dates: start: 2013
  141. KEPPRA [Concomitant]
     Active Substance: LEVETIRACETAM
     Dosage: 250 MG, 2X/DAY (ONE TABLET)
     Dates: start: 20180521
  142. DILANTIN [Suspect]
     Active Substance: PHENYTOIN
     Dosage: 100 MG, 3X/DAY (ONE CAPSULE)
     Dates: start: 20090414
  143. DILANTIN [Suspect]
     Active Substance: PHENYTOIN
     Indication: SEIZURE
     Dosage: UNK
     Route: 042
  144. ASPIRIN. [Concomitant]
     Active Substance: ASPIRIN
     Dosage: 81 MG, UNK
     Dates: start: 20170703
  145. ASPIRIN. [Concomitant]
     Active Substance: ASPIRIN
     Dosage: 81 MG, UNK
     Dates: start: 20171208
  146. ASPIRIN. [Concomitant]
     Active Substance: ASPIRIN
     Dosage: 81 MG, UNK
     Dates: start: 20180116
  147. FOSAMAX [Concomitant]
     Active Substance: ALENDRONATE SODIUM
     Dosage: 70 MG, UNK
     Dates: start: 20130117
  148. TRENTAL [Concomitant]
     Active Substance: PENTOXIFYLLINE
     Dosage: 400 MG, UNK
     Dates: start: 20130117
  149. TRENTAL [Concomitant]
     Active Substance: PENTOXIFYLLINE
     Dosage: 400 MG, UNK
     Dates: start: 20170302
  150. TRENTAL [Concomitant]
     Active Substance: PENTOXIFYLLINE
     Dosage: 400 MG, UNK
     Dates: start: 20180219
  151. PHENOBARBITAL. [Concomitant]
     Active Substance: PHENOBARBITAL
     Dosage: 32.4 MG, UNK
     Dates: start: 20150717
  152. PHENOBARBITAL. [Concomitant]
     Active Substance: PHENOBARBITAL
     Dosage: 32.4 MG, 2X/DAY
     Dates: start: 20090326
  153. PHENOBARBITAL. [Concomitant]
     Active Substance: PHENOBARBITAL
     Dosage: 32.4 MG, 2X/DAY
     Dates: start: 20090828
  154. PHENOBARBITAL. [Concomitant]
     Active Substance: PHENOBARBITAL
     Dosage: 32.4 MG, 2X/DAY
     Dates: start: 20110131
  155. PHENOBARBITAL. [Concomitant]
     Active Substance: PHENOBARBITAL
     Dosage: 32.4 MG, 2X/DAY
     Dates: start: 20170118
  156. PRILOSEC [Concomitant]
     Active Substance: OMEPRAZOLE MAGNESIUM
     Dosage: 20 MG, UNK
     Dates: start: 20150717
  157. DEBROX [Concomitant]
     Active Substance: CARBAMIDE PEROXIDE
     Dosage: 5 GTT, 3X/DAY
     Route: 001
  158. DEBROX [Concomitant]
     Active Substance: CARBAMIDE PEROXIDE
     Dosage: 5 DF, 3X/DAY (FIVE DROPS)
     Route: 001
     Dates: start: 20170118
  159. PHENYTOIN. [Concomitant]
     Active Substance: PHENYTOIN
     Dosage: 50 MG, 1X/DAY
     Route: 048
     Dates: end: 20180321
  160. STROVITE ONE [Concomitant]
     Active Substance: MINERALS\VITAMINS
     Indication: NUTRITIONAL SUPPLEMENTATION
     Dosage: 1 DF, 1X/DAY
     Route: 048
     Dates: end: 20180321
  161. STROVITE ONE [Concomitant]
     Active Substance: MINERALS\VITAMINS
     Dosage: UNK
     Dates: start: 20171220
  162. MOBIC [Concomitant]
     Active Substance: MELOXICAM
     Dosage: 15 MG, UNK
     Dates: start: 20180207
  163. CALTRATE 600+D PLUS MINERALS [Concomitant]
     Dosage: UNK
     Dates: start: 20170302
  164. CALTRATE 600+D PLUS MINERALS [Concomitant]
     Dosage: UNK
     Dates: start: 20180116
  165. FERROUS SULFATE. [Concomitant]
     Active Substance: FERROUS SULFATE
     Indication: SUPPLEMENTATION THERAPY
     Dosage: 325 MG, UNK
     Dates: start: 2010, end: 2011
  166. RELAFEN [Concomitant]
     Active Substance: NABUMETONE
     Dosage: 750 MG, UNK
     Dates: start: 20080612
  167. DILANTIN [Suspect]
     Active Substance: PHENYTOIN
     Indication: SEIZURE
     Dosage: 50 MG, 1X/DAY
     Route: 048
  168. NAPROXEN SODIUM. [Concomitant]
     Active Substance: NAPROXEN SODIUM
     Dosage: 550 MG, UNK
     Dates: start: 20100410
  169. NAPROXEN SODIUM. [Concomitant]
     Active Substance: NAPROXEN SODIUM
     Dosage: 550 MG, UNK
     Dates: start: 20110117
  170. NAPROXEN SODIUM. [Concomitant]
     Active Substance: NAPROXEN SODIUM
     Dosage: 550 MG, UNK
     Dates: start: 20170302
  171. NAPROXEN SODIUM. [Concomitant]
     Active Substance: NAPROXEN SODIUM
     Dosage: 550 MG, UNK
     Dates: start: 20170703
  172. NAPROXEN SODIUM. [Concomitant]
     Active Substance: NAPROXEN SODIUM
     Dosage: 550 MG, UNK
     Dates: start: 20180116
  173. ZANTAC [Concomitant]
     Active Substance: RANITIDINE HYDROCHLORIDE
     Dosage: 300 MG, UNK
     Dates: start: 20170703
  174. CATAFLAM [Concomitant]
     Active Substance: DICLOFENAC POTASSIUM
     Dosage: 50 MG, 2X/DAY
     Route: 048
  175. ASPIRIN. [Concomitant]
     Active Substance: ASPIRIN
     Dosage: 81 MG, UNK
     Dates: start: 20091002
  176. ASPIRIN. [Concomitant]
     Active Substance: ASPIRIN
     Dosage: 81 MG, UNK
     Dates: start: 20171128
  177. ASPIRIN. [Concomitant]
     Active Substance: ASPIRIN
     Dosage: 81 MG, UNK
     Dates: start: 20180116
  178. TRENTAL [Concomitant]
     Active Substance: PENTOXIFYLLINE
     Dosage: 400 MG, UNK
     Dates: start: 20150717
  179. PHENOBARBITAL. [Concomitant]
     Active Substance: PHENOBARBITAL
     Dosage: 32.4 MG, 2X/DAY
     Dates: start: 20100825
  180. PHENOBARBITAL. [Concomitant]
     Active Substance: PHENOBARBITAL
     Dosage: 32.4 MG, 2X/DAY
     Dates: start: 20140610
  181. PHENOBARBITAL. [Concomitant]
     Active Substance: PHENOBARBITAL
     Dosage: 16.2 MG, (ONE TABLET)
     Route: 048
     Dates: start: 20171128
  182. PRILOSEC [Concomitant]
     Active Substance: OMEPRAZOLE MAGNESIUM
     Indication: GASTROOESOPHAGEAL REFLUX DISEASE
     Dosage: 20 MG, 1X/DAY
     Route: 048
  183. VITAMIN D3 [Concomitant]
     Active Substance: CHOLECALCIFEROL
     Dosage: 50000 IU, UNK
     Dates: start: 20180209, end: 20180409
  184. MOBIC [Concomitant]
     Active Substance: MELOXICAM
     Indication: BACK PAIN
     Dosage: 15 MG, 1X/DAY
     Route: 048
     Dates: end: 20180408
  185. CALTRATE 600+D PLUS MINERALS [Concomitant]
     Dosage: 1 DF, 1X/DAY (600 MG CALCIUM-800 UNIT-50 MG)
     Route: 048
     Dates: start: 20170118
  186. CALTRATE 600+D PLUS MINERALS [Concomitant]
     Dosage: UNK
     Dates: start: 20171220
  187. CALTRATE 600+D PLUS MINERALS [Concomitant]
     Dosage: UNK
     Dates: start: 20180207
  188. FERROUS SULFATE. [Concomitant]
     Active Substance: FERROUS SULFATE
     Dosage: UNK
     Dates: start: 20110117
  189. RELAFEN [Concomitant]
     Active Substance: NABUMETONE
     Indication: PAIN
     Dosage: 750 MG, UNK
     Dates: start: 20080526
  190. KEPPRA [Concomitant]
     Active Substance: LEVETIRACETAM
     Dosage: 250 MG, 2X/DAY (ONE TABLET)
     Dates: start: 20171208
  191. DILANTIN [Suspect]
     Active Substance: PHENYTOIN
     Dosage: 100 MG, 2X/DAY
     Route: 048
  192. DILANTIN [Suspect]
     Active Substance: PHENYTOIN
     Dosage: 100 MG, 3X/DAY (ONE CAPSULE)
     Dates: start: 20121018
  193. DILANTIN [Suspect]
     Active Substance: PHENYTOIN
     Dosage: 100 MG, 3X/DAY (ONE CAPSULE)
     Dates: start: 20140922
  194. DILANTIN [Suspect]
     Active Substance: PHENYTOIN
     Dosage: 100 MG, 3X/DAY (ONE CAPSULE)
     Dates: start: 20161018
  195. DILANTIN [Suspect]
     Active Substance: PHENYTOIN
     Dosage: 100 MG, 3X/DAY (ONE CAPSULE)
     Dates: start: 20171107
  196. DILANTIN [Suspect]
     Active Substance: PHENYTOIN
     Dosage: 50 MG, 1X/DAY (CHEWABLE 1 TABLET)
     Route: 048
     Dates: start: 20171220
  197. NAPROXEN SODIUM. [Concomitant]
     Active Substance: NAPROXEN SODIUM
     Dosage: 550 MG, UNK
     Dates: start: 20121018
  198. NAPROXEN SODIUM. [Concomitant]
     Active Substance: NAPROXEN SODIUM
     Dosage: 550 MG, UNK
     Dates: start: 20171208
  199. CALTRATE [Concomitant]
     Active Substance: CALCIUM CARBONATE
     Dosage: 1 DF, DAILY
     Route: 048
     Dates: start: 20170118
  200. ASPIRIN. [Concomitant]
     Active Substance: ASPIRIN
     Dosage: 81 MG, UNK
     Dates: start: 20170118
  201. FOSAMAX [Concomitant]
     Active Substance: ALENDRONATE SODIUM
     Dosage: 70 MG, UNK
     Dates: start: 20140610
  202. TRENTAL [Concomitant]
     Active Substance: PENTOXIFYLLINE
     Dosage: 400 MG, UNK
     Dates: start: 20170703
  203. TRENTAL [Concomitant]
     Active Substance: PENTOXIFYLLINE
     Dosage: 400 MG, UNK
     Dates: start: 20171220
  204. TRENTAL [Concomitant]
     Active Substance: PENTOXIFYLLINE
     Dosage: 400 MG, UNK
     Dates: start: 20180116
  205. PHENOBARBITAL. [Concomitant]
     Active Substance: PHENOBARBITAL
     Dosage: 16.2 MG, 2X/DAY
     Route: 048
  206. PHENOBARBITAL. [Concomitant]
     Active Substance: PHENOBARBITAL
     Dosage: 32.4 MG, 3X/DAY
     Route: 048
  207. PHENOBARBITAL. [Concomitant]
     Active Substance: PHENOBARBITAL
     Dosage: 32.4 MG, 2X/DAY
     Dates: start: 20071220
  208. PHENOBARBITAL. [Concomitant]
     Active Substance: PHENOBARBITAL
     Dosage: 32.4 MG, 2X/DAY
     Dates: start: 20080526
  209. PHENOBARBITAL. [Concomitant]
     Active Substance: PHENOBARBITAL
     Dosage: 32.4 MG, 2X/DAY
     Dates: start: 20081029
  210. PHENOBARBITAL. [Concomitant]
     Active Substance: PHENOBARBITAL
     Dosage: 32.4 MG, 2X/DAY
     Dates: start: 20161122
  211. PHENOBARBITAL. [Concomitant]
     Active Substance: PHENOBARBITAL
     Dosage: 32.4 MG, 2X/DAY
     Dates: start: 20170302
  212. PHENOBARBITAL. [Concomitant]
     Active Substance: PHENOBARBITAL
     Dosage: 16.2 MG, (ONE TABLET)
     Route: 048
     Dates: start: 20171208
  213. DEBROX [Concomitant]
     Active Substance: CARBAMIDE PEROXIDE
     Dosage: 6.5 %, UNK
     Route: 001
     Dates: start: 20150717
  214. PHENYTOIN. [Concomitant]
     Active Substance: PHENYTOIN
     Dosage: 50 MG, 3X/DAY
     Route: 048
  215. PENTOXIFYLLINE. [Concomitant]
     Active Substance: PENTOXIFYLLINE
     Dosage: 400 MG, 2X/DAY
     Route: 048
  216. CALTRATE 600+D [Concomitant]
     Dosage: 800 IU, 1X/DAY
     Route: 048
  217. CALTRATE 600+D PLUS MINERALS [Concomitant]
     Dosage: UNK
     Dates: start: 20170703
  218. CALTRATE 600+D PLUS MINERALS [Concomitant]
     Dosage: UNK
     Dates: start: 20171208
  219. FERROUS SULFATE. [Concomitant]
     Active Substance: FERROUS SULFATE
     Indication: NUTRITIONAL SUPPLEMENTATION
     Dosage: UNK
     Dates: start: 20100902
  220. VITAMINS [Concomitant]
     Active Substance: VITAMINS
     Indication: NUTRITIONAL SUPPLEMENTATION
     Dosage: UNK
     Dates: start: 2018
  221. KEPPRA [Concomitant]
     Active Substance: LEVETIRACETAM
     Dosage: 250 MG, 2X/DAY (ONE TABLET)
     Dates: start: 20171211
  222. DILANTIN [Suspect]
     Active Substance: PHENYTOIN
     Dosage: 100 MG, 3X/DAY (ONE CAPSULE)
     Dates: start: 20080526
  223. DILANTIN [Suspect]
     Active Substance: PHENYTOIN
     Dosage: 100 MG, 3X/DAY (ONE CAPSULE)
     Dates: start: 20090326
  224. DILANTIN [Suspect]
     Active Substance: PHENYTOIN
     Dosage: 100 MG, 3X/DAY (ONE CAPSULE)
     Dates: start: 20110117
  225. DILANTIN [Suspect]
     Active Substance: PHENYTOIN
     Dosage: 100 MG, 3X/DAY (ONE CAPSULE)
     Dates: start: 20110131
  226. DILANTIN [Suspect]
     Active Substance: PHENYTOIN
     Dosage: 100 MG, 3X/DAY (ONE CAPSULE)
     Dates: start: 20131112
  227. DILANTIN [Suspect]
     Active Substance: PHENYTOIN
     Dosage: 50 MG, 1X/DAY (CHEWABLE 1 TABLET)
     Route: 048
     Dates: start: 20171128
  228. DILANTIN [Suspect]
     Active Substance: PHENYTOIN
     Dosage: UNK, 1X/DAY
  229. NAPROXEN SODIUM. [Concomitant]
     Active Substance: NAPROXEN SODIUM
     Dosage: 550 MG, UNK
     Dates: start: 20170118
  230. NAPROXEN SODIUM. [Concomitant]
     Active Substance: NAPROXEN SODIUM
     Dosage: 550 MG, UNK
     Dates: start: 20171128
  231. NAPROXEN SODIUM. [Concomitant]
     Active Substance: NAPROXEN SODIUM
     Dosage: 550 MG, UNK
     Dates: start: 20171211
  232. ZANTAC [Concomitant]
     Active Substance: RANITIDINE HYDROCHLORIDE
     Dosage: 300 MG, UNK
     Dates: start: 20170501
  233. ASPIRIN. [Concomitant]
     Active Substance: ASPIRIN
     Dosage: 81 MG, UNK
     Dates: start: 20131112
  234. FOSAMAX [Concomitant]
     Active Substance: ALENDRONATE SODIUM
     Dosage: 70 MG, UNK
     Dates: start: 20140318
  235. FOSAMAX [Concomitant]
     Active Substance: ALENDRONATE SODIUM
     Dosage: 70 MG, UNK
     Dates: start: 20170118
  236. FOSAMAX [Concomitant]
     Active Substance: ALENDRONATE SODIUM
     Dosage: 70 MG, UNK
     Dates: start: 20180219
  237. TRENTAL [Concomitant]
     Active Substance: PENTOXIFYLLINE
     Indication: MYALGIA
     Dosage: 400 MG, 2X/DAY
     Route: 048
  238. TRENTAL [Concomitant]
     Active Substance: PENTOXIFYLLINE
     Dosage: 400 MG, UNK
     Dates: start: 20080526
  239. TRENTAL [Concomitant]
     Active Substance: PENTOXIFYLLINE
     Dosage: 400 MG, UNK
     Dates: start: 20131112
  240. TRENTAL [Concomitant]
     Active Substance: PENTOXIFYLLINE
     Dosage: 400 MG, UNK
     Dates: start: 20170501
  241. PHENOBARBITAL. [Concomitant]
     Active Substance: PHENOBARBITAL
     Dosage: 32.4 MG, 2X/DAY
     Dates: start: 20100514, end: 20100514
  242. PHENOBARBITAL. [Concomitant]
     Active Substance: PHENOBARBITAL
     Dosage: 16.2 MG, (ONE TABLET)
     Route: 048
     Dates: start: 20171121
  243. LEVAQUIN [Concomitant]
     Active Substance: LEVOFLOXACIN
     Indication: INFECTION
     Dosage: 250 MG, DAILY
     Route: 048
  244. LEVAQUIN [Concomitant]
     Active Substance: LEVOFLOXACIN
     Dosage: 250 MG, UNK
     Dates: start: 20180214, end: 20180409
  245. LEVETIRACETAM. [Concomitant]
     Active Substance: LEVETIRACETAM
     Indication: EPILEPSY
     Dosage: 250 MG, 2X/DAY
     Route: 048
  246. MULTIPLE VITAMINS WITH MINERALS [Concomitant]
     Active Substance: MINERALS\VITAMINS
     Indication: NUTRITIONAL SUPPLEMENTATION
     Dosage: 1 DF, DAILY
     Route: 048
  247. STROVITE ONE [Concomitant]
     Active Substance: MINERALS\VITAMINS
     Dosage: UNK
     Dates: start: 20180116
  248. ALENDRONATE [Concomitant]
     Active Substance: ALENDRONATE SODIUM
     Dosage: 70 MG, UNK
     Dates: start: 20171107
  249. CALTRATE 600+D PLUS MINERALS [Concomitant]
     Dosage: UNK
     Dates: start: 20131112
  250. VITAMIN B12 [Concomitant]
     Active Substance: CYANOCOBALAMIN
     Dosage: 1000 UG, UNK
     Route: 060
     Dates: start: 20150717
  251. NORFLEX [Concomitant]
     Active Substance: ORPHENADRINE CITRATE
     Dosage: 100 MG, 2X/DAY (EXTENDED RELEASE)
     Route: 048
     Dates: start: 20170118, end: 20170204

REACTIONS (14)
  - Coordination abnormal [Not Recovered/Not Resolved]
  - Tremor [Not Recovered/Not Resolved]
  - Aggression [Not Recovered/Not Resolved]
  - Confusional state [Not Recovered/Not Resolved]
  - Neuropathy peripheral [Not Recovered/Not Resolved]
  - Balance disorder [Not Recovered/Not Resolved]
  - Muscular weakness [Not Recovered/Not Resolved]
  - Cerebellar atrophy [Not Recovered/Not Resolved]
  - Disorientation [Not Recovered/Not Resolved]
  - Dysarthria [Not Recovered/Not Resolved]
  - Ataxia [Not Recovered/Not Resolved]
  - Amnesia [Not Recovered/Not Resolved]
  - Hypoaesthesia [Not Recovered/Not Resolved]
  - Headache [Not Recovered/Not Resolved]
